FAERS Safety Report 7234817-5 (Version None)
Quarter: 2011Q1

REPORT INFORMATION
  Report Type: 
  Country: None (occurrence: None)
  Receive Date: 20110114
  Receipt Date: 20110114
  Transmission Date: 20110831
  Serious: Yes (Hospitalization)
  Sender: FDA-Public Use
  Company Number: None

PATIENT
  Age: 52 Year
  Sex: Male
  Weight: 92 kg

DRUGS (1)
  1. LITHIUM CARBONATE [Suspect]
     Indication: SCHIZOAFFECTIVE DISORDER
     Dosage: 600 MG BID PO
     Route: 048
     Dates: start: 20101025, end: 20101214

REACTIONS (9)
  - ACUTE PSYCHOSIS [None]
  - DIARRHOEA [None]
  - WHITE BLOOD CELL COUNT INCREASED [None]
  - COLITIS [None]
  - PARKINSONISM [None]
  - URINARY INCONTINENCE [None]
  - FAECAL INCONTINENCE [None]
  - TOXICITY TO VARIOUS AGENTS [None]
  - GASTRIC HAEMORRHAGE [None]
